FAERS Safety Report 10939659 (Version 3)
Quarter: 2022Q2

REPORT INFORMATION
  Report Type: Spontaneous
  Country: US (occurrence: US)
  Receive Date: 20150322
  Receipt Date: 20220616
  Transmission Date: 20220721
  Serious: Yes (Other)
  Sender: FDA-Public Use
  Company Number: US-JNJFOC-20140113285

PATIENT
  Age: 10 Year
  Sex: Male

DRUGS (1)
  1. RISPERDAL [Suspect]
     Active Substance: RISPERIDONE
     Indication: Tourette^s disorder
     Route: 048
     Dates: start: 200604, end: 201305

REACTIONS (9)
  - Gynaecomastia [Recovered/Resolved]
  - Depression [Recovered/Resolved]
  - Emotional disorder [Unknown]
  - Galactorrhoea [Recovered/Resolved]
  - Product use in unapproved indication [Unknown]
  - Blood prolactin increased [Not Recovered/Not Resolved]
  - Abnormal weight gain [Unknown]
  - Constipation [Unknown]
  - Non-cardiac chest pain [Unknown]

NARRATIVE: CASE EVENT DATE: 20060101
